FAERS Safety Report 8434988-9 (Version None)
Quarter: 2012Q2

REPORT INFORMATION
  Report Type: 
  Country: None (occurrence: None)
  Receive Date: 20120614
  Receipt Date: 20120611
  Transmission Date: 20120825
  Serious: No
  Sender: FDA-Public Use
  Company Number: US-PFIZER INC-2012140323

PATIENT
  Sex: Male

DRUGS (3)
  1. EFFEXOR XR [Suspect]
     Indication: HYPERHIDROSIS
     Dosage: UNK
  2. LUPRON [Concomitant]
     Dosage: UNK
  3. EFFEXOR XR [Suspect]
     Indication: CHILLS

REACTIONS (1)
  - INSOMNIA [None]
